FAERS Safety Report 9426358 (Version 1)
Quarter: 2013Q3

REPORT INFORMATION
  Report Type: Spontaneous
  Country: US (occurrence: None)
  Receive Date: 20130729
  Receipt Date: 20130729
  Transmission Date: 20140515
  Serious: No
  Sender: FDA-Public Use
  Company Number: None

PATIENT
  Age: 33 Year
  Sex: Male

DRUGS (1)
  1. CIPROFLOXACIN [Suspect]
     Dates: start: 20110822, end: 20110825

REACTIONS (13)
  - Drug-induced liver injury [None]
  - Asthenia [None]
  - Vomiting [None]
  - Headache [None]
  - Pain [None]
  - Aspartate aminotransferase increased [None]
  - Alanine aminotransferase increased [None]
  - Blood bilirubin increased [None]
  - Hepatitis [None]
  - Weight decreased [None]
  - Hepatic failure [None]
  - Peritonitis bacterial [None]
  - Abdominal infection [None]
